FAERS Safety Report 20305316 (Version 1)
Quarter: 2022Q1

REPORT INFORMATION
  Report Type: Spontaneous
  Country: US (occurrence: None)
  Receive Date: 20220106
  Receipt Date: 20220106
  Transmission Date: 20220423
  Serious: Yes (Hospitalization)
  Sender: FDA-Public Use
  Company Number: None

PATIENT
  Age: 68 Year
  Sex: Male
  Weight: 93.15 kg

DRUGS (3)
  1. CLOPIDOGREL [Suspect]
     Active Substance: CLOPIDOGREL BISULFATE
     Indication: Anticoagulant therapy
     Dosage: FREQUENCY : DAILY;?
     Route: 048
     Dates: start: 20211129, end: 20211229
  2. BRILINTA [Suspect]
     Active Substance: TICAGRELOR
  3. PRASUGREL [Suspect]
     Active Substance: PRASUGREL

REACTIONS (6)
  - Epistaxis [None]
  - Arthralgia [None]
  - Rash [None]
  - Arthralgia [None]
  - Pruritus [None]
  - Arthritis [None]

NARRATIVE: CASE EVENT DATE: 20211225
